FAERS Safety Report 6042313-6 (Version None)
Quarter: 2009Q1

REPORT INFORMATION
  Report Type: 
  Country: None (occurrence: None)
  Receive Date: 20090116
  Receipt Date: 20090106
  Transmission Date: 20090719
  Serious: Yes (Other)
  Sender: FDA-Public Use
  Company Number: BR-PFIZER INC-2008150894

PATIENT

DRUGS (3)
  1. GEODON [Suspect]
     Indication: NERVOUSNESS
     Dosage: 40 MG, 1X/DAY
     Route: 048
     Dates: start: 20081126
  2. GEODON [Suspect]
     Indication: MENTAL DISORDER
  3. DIAZEPAM [Suspect]
     Dosage: UNK
     Route: 065
     Dates: start: 20081001

REACTIONS (9)
  - AGGRESSION [None]
  - AGITATION [None]
  - AMNESIA [None]
  - DECREASED APPETITE [None]
  - DIZZINESS [None]
  - DRUG INEFFECTIVE [None]
  - HALLUCINATION [None]
  - HEADACHE [None]
  - INSOMNIA [None]
